FAERS Safety Report 8169859-9 (Version None)
Quarter: 2012Q1

REPORT INFORMATION
  Report Type: 
  Country: None (occurrence: None)
  Receive Date: 20120105
  Receipt Date: 20110124
  Transmission Date: 20120608
  Serious: Yes (Other)
  Sender: FDA-Public Use
  Company Number: US-005409

PATIENT
  Age: 57 Year
  Sex: Male
  Weight: 58 kg

DRUGS (19)
  1. ONDANSETRON [Concomitant]
  2. ABCIXIMAB (ABCIXIMAB) [Concomitant]
  3. HYDROCHLOROTHIAZIDE [Concomitant]
  4. PROHANCE [Suspect]
     Indication: MYOCARDIAL INFARCTION
     Dosage: 23ML ONCE INTRAVENOUS (NOT OTHERWISE SPECIFIED)
     Route: 042
     Dates: start: 20101022, end: 20101022
  5. PROHANCE [Suspect]
     Indication: NUCLEAR MAGNETIC RESONANCE IMAGING
     Dosage: 23ML ONCE INTRAVENOUS (NOT OTHERWISE SPECIFIED)
     Route: 042
     Dates: start: 20101022, end: 20101022
  6. MAGNESIUM SULFATE [Concomitant]
  7. DEXTROSE 5% IN WATER (GLUCOSE) [Concomitant]
  8. ESOMEPRAZOLE MAGNESIUM [Concomitant]
  9. NON-FORMULARY MEDICATION [Concomitant]
  10. PROHANCE [Suspect]
  11. AMLODIPINE [Concomitant]
  12. POTASSIUM CHLORIDE [Concomitant]
  13. ASPIRIN [Concomitant]
  14. PRASUGREL (PRASUGREL) [Concomitant]
  15. NITROGLYCERIN [Concomitant]
  16. SODIUM CHLORIDE 0.9% (SODIUM CHLORIDE) [Concomitant]
  17. CARVEDILOL [Concomitant]
  18. ATORVASTATIN [Concomitant]
  19. FOSINOPRIL SODIUM [Concomitant]

REACTIONS (5)
  - HEART RATE DECREASED [None]
  - HYPOTENSION [None]
  - DIZZINESS [None]
  - ASTHENIA [None]
  - PRESYNCOPE [None]
